FAERS Safety Report 7773044-X (Version None)
Quarter: 2011Q3

REPORT INFORMATION
  Report Type: 
  Country: None (occurrence: None)
  Receive Date: 20110922
  Receipt Date: 20101112
  Transmission Date: 20111222
  Serious: Yes (Other)
  Sender: FDA-Public Use
  Company Number: US-ASTRAZENECA-2009SE31146

PATIENT
  Age: 52 Year
  Sex: Female
  Weight: 83.9 kg

DRUGS (6)
  1. TRAZODONE HCL [Concomitant]
  2. AMBIEN [Concomitant]
  3. MOBIC [Concomitant]
  4. CELEXA [Concomitant]
  5. SEROQUEL [Suspect]
     Indication: BIPOLAR I DISORDER
     Route: 048
  6. KLONOPIN [Concomitant]

REACTIONS (11)
  - TONGUE BITING [None]
  - WEIGHT INCREASED [None]
  - HYPERHIDROSIS [None]
  - FATIGUE [None]
  - TACHYCARDIA [None]
  - PROTRUSION TONGUE [None]
  - PNEUMONIA [None]
  - SUICIDAL IDEATION [None]
  - ASTHENIA [None]
  - TONGUE PARALYSIS [None]
  - PYREXIA [None]
